FAERS Safety Report 6982558-1 (Version None)
Quarter: 2010Q3

REPORT INFORMATION
  Report Type: 
  Country: None (occurrence: None)
  Receive Date: 20100914
  Receipt Date: 20100222
  Transmission Date: 20110219
  Serious: Yes (Other)
  Sender: FDA-Public Use
  Company Number: US-PFIZER INC-2010023295

PATIENT
  Sex: Female
  Weight: 135 kg

DRUGS (17)
  1. LYRICA [Suspect]
     Indication: FIBROMYALGIA
     Dosage: 75 MG, 1X/DAY
     Route: 048
  2. REMICADE [Suspect]
     Dosage: UNK
  3. GLIMEPIRIDE [Concomitant]
     Indication: DIABETES MELLITUS
     Dosage: 4 MG, 1X/DAY
     Route: 048
  4. SITAGLIPTIN [Concomitant]
     Indication: DIABETES MELLITUS
     Dosage: 100 MG, 1X/DAY
     Route: 048
  5. NOVOLOG [Concomitant]
     Indication: DIABETES MELLITUS
     Dosage: 25 ML, 3X/DAY
  6. LANTUS [Concomitant]
     Indication: DIABETES MELLITUS
     Dosage: 65 ML, 2X/DAY
  7. OMEPRAZOLE [Concomitant]
     Indication: GASTROOESOPHAGEAL REFLUX DISEASE
     Dosage: 20 MG, 2X/DAY
     Route: 048
  8. NEURONTIN [Concomitant]
     Indication: DIABETES MELLITUS
     Dosage: 300 MG, 2X/DAY
     Route: 048
  9. DICLOFENAC SODIUM [Concomitant]
     Indication: ARTHRITIS
     Dosage: 75 MG, 2X/DAY
     Route: 048
  10. ULTRAM [Concomitant]
     Indication: ARTHRITIS
     Dosage: 50 MG, 2X/DAY
     Route: 048
  11. LISINOPRIL [Concomitant]
     Indication: HYPERTENSION
     Dosage: 20 MG, 1X/DAY
     Route: 048
  12. ZOLOFT [Concomitant]
     Indication: BLOOD CHOLESTEROL INCREASED
     Dosage: 50 MG, 1X/DAY
     Route: 048
  13. MONTELUKAST [Concomitant]
     Indication: HYPERSENSITIVITY
     Dosage: 10 MG, 1X/DAY
     Route: 048
  14. FLONASE [Concomitant]
     Indication: ASTHMA
     Dosage: UNK
  15. ZETIA [Concomitant]
     Indication: BLOOD CHOLESTEROL INCREASED
     Dosage: 10 MG, 1X/DAY
     Route: 048
  16. NIFEDICAL [Concomitant]
     Indication: HYPERTENSION
     Dosage: 60 MG, 2X/DAY
     Route: 048
  17. ZYRTEC [Concomitant]
     Dosage: UNK

REACTIONS (1)
  - SWELLING [None]
